FAERS Safety Report 22028028 (Version 1)
Quarter: 2023Q1

REPORT INFORMATION
  Report Type: Other
  Country: CA (occurrence: CA)
  Receive Date: 20230223
  Receipt Date: 20230223
  Transmission Date: 20230418
  Serious: Yes (Other)
  Sender: FDA-Public Use
  Company Number: CA-APOTEX-2023AP003793

PATIENT
  Age: 58 Year
  Sex: Male

DRUGS (2)
  1. ZOLEDRONIC ACID [Suspect]
     Active Substance: ZOLEDRONIC ACID
     Indication: Product used for unknown indication
     Dosage: UNK
     Route: 065
  2. SUTENT [Suspect]
     Active Substance: SUNITINIB MALATE
     Indication: Metastatic renal cell carcinoma
     Dosage: UNK
     Route: 065

REACTIONS (7)
  - Chest wall mass [Unknown]
  - Compression fracture [Unknown]
  - Metastases to bone [Unknown]
  - Metastases to liver [Unknown]
  - Musculoskeletal discomfort [Unknown]
  - Pleural effusion [Unknown]
  - Fatigue [Unknown]
